FAERS Safety Report 18998869 (Version 4)
Quarter: 2021Q3

REPORT INFORMATION
  Report Type: Report from Study
  Country: CL (occurrence: CL)
  Receive Date: 20210311
  Receipt Date: 20210731
  Transmission Date: 20211014
  Serious: Yes (Hospitalization, Other)
  Sender: FDA-Public Use
  Company Number: NVSC2021CL052838

PATIENT
  Sex: Male

DRUGS (4)
  1. COSENTYX [Suspect]
     Active Substance: SECUKINUMAB
     Dosage: 150 MG, UNKNOWN
     Route: 065
     Dates: start: 20210710
  2. COSENTYX [Suspect]
     Active Substance: SECUKINUMAB
     Indication: PSORIATIC ARTHROPATHY
     Dosage: 150 MG, QMO
     Route: 058
     Dates: start: 20200131, end: 202101
  3. COSENTYX [Suspect]
     Active Substance: SECUKINUMAB
     Dosage: 150 MG, UNKNOWN
     Route: 065
     Dates: start: 20210411
  4. COSENTYX [Suspect]
     Active Substance: SECUKINUMAB
     Dosage: 150 MG, UNKNOWN
     Route: 065
     Dates: start: 20210510

REACTIONS (8)
  - Illness [Unknown]
  - Gait disturbance [Unknown]
  - Inflammation [Unknown]
  - Inappropriate schedule of product administration [Unknown]
  - Renal disorder [Recovering/Resolving]
  - Psoriasis [Not Recovered/Not Resolved]
  - Arthritis [Unknown]
  - Product prescribing error [Unknown]
